FAERS Safety Report 7268460-9 (Version None)
Quarter: 2011Q1

REPORT INFORMATION
  Report Type: 
  Country: None (occurrence: None)
  Receive Date: 20110201
  Receipt Date: 20110131
  Transmission Date: 20110831
  Serious: Yes (Hospitalization, Other)
  Sender: FDA-Public Use
  Company Number: NL-ABBOTT-10P-114-0693436-00

PATIENT
  Sex: Male
  Weight: 52 kg

DRUGS (17)
  1. AMLODIPINE MALEATE [Concomitant]
     Indication: HYPERTENSION
     Route: 048
     Dates: start: 20050101
  2. FLUTICASONE PROPIONATE [Concomitant]
     Indication: PRODUCT USED FOR UNKNOWN INDICATION
     Dosage: 250 MCG/DOSE
     Route: 055
  3. PANTOPRAZOL [Concomitant]
     Indication: GASTRIC DISORDER
  4. BUDESONIDE [Concomitant]
     Indication: CROHN'S DISEASE
     Dosage: 3 UNITS ONCE DAILY
     Route: 048
  5. METOPROLOL TARTRATE [Concomitant]
     Indication: HYPERTENSION
     Route: 048
     Dates: start: 20050101
  6. CODEINE W/PARACETAMOL [Concomitant]
     Indication: PAIN
     Dosage: 500/20 MG AS NEEDED
     Route: 048
  7. EZETIMIBE [Concomitant]
     Indication: BLOOD CHOLESTEROL INCREASED
     Route: 048
     Dates: start: 20050101
  8. PANTOPRAZOL [Concomitant]
     Indication: PROPHYLAXIS
  9. ACETYLSALICYLIC ACID SRT [Concomitant]
     Indication: ANTICOAGULANT THERAPY
     Route: 048
     Dates: start: 20050101
  10. CODEINE W/PARACETAMOL [Concomitant]
     Indication: PRURITUS
  11. LOPERAMIDE [Concomitant]
     Indication: DIARRHOEA
     Route: 048
     Dates: start: 20100101
  12. ROSUVASTATINE [Concomitant]
     Indication: BLOOD CHOLESTEROL INCREASED
     Route: 048
  13. HUMIRA [Suspect]
     Indication: CROHN'S DISEASE
     Route: 058
     Dates: start: 20080101, end: 20101221
  14. FERROUS FUMARATE [Concomitant]
     Indication: IRON DEFICIENCY
     Route: 048
  15. FUROSEMIDE [Concomitant]
     Indication: OEDEMA
     Route: 048
  16. MESALAZINE [Concomitant]
     Indication: PRODUCT USED FOR UNKNOWN INDICATION
  17. PERINDOPRIL [Concomitant]
     Indication: HYPERTENSION
     Route: 048

REACTIONS (10)
  - HYPOKALAEMIA [None]
  - PULMONARY EMBOLISM [None]
  - SERRATIA INFECTION [None]
  - RESPIRATORY FAILURE [None]
  - WEIGHT DECREASED [None]
  - OEDEMA [None]
  - FATIGUE [None]
  - GASTROINTESTINAL CARCINOMA [None]
  - PNEUMONIA [None]
  - PRURITUS [None]
